FAERS Safety Report 24074920 (Version 1)
Quarter: 2024Q3

REPORT INFORMATION
  Report Type: Spontaneous
  Country: US (occurrence: US)
  Receive Date: 20240710
  Receipt Date: 20240710
  Transmission Date: 20241017
  Serious: No
  Sender: PIERRE FABRE MEDICAMENT
  Company Number: US-PFM-2023-06715

PATIENT
  Sex: Male
  Weight: 6.109 kg

DRUGS (1)
  1. HEMANGEOL [Suspect]
     Active Substance: PROPRANOLOL HYDROCHLORIDE
     Indication: Haemangioma
     Dosage: 1.8 ML, BID (2/DAY)
     Route: 048
     Dates: start: 20231025

REACTIONS (5)
  - Cold sweat [Unknown]
  - Gastroenteritis [Unknown]
  - Lethargy [Unknown]
  - Agitation [Unknown]
  - Vomiting [Unknown]
